FAERS Safety Report 9552121 (Version 1)
Quarter: 2013Q2

REPORT INFORMATION
  Report Type: Spontaneous
  Country: US (occurrence: None)
  Receive Date: 20130524
  Receipt Date: 20130524
  Transmission Date: 20140414
  Serious: No
  Sender: FDA-Public Use
  Company Number: PHEH2013US000732

PATIENT
  Sex: Female
  Weight: 74.8 kg

DRUGS (6)
  1. GILENYA (FINGOLIMOD) CAPSULE [Suspect]
  2. ZOLOFT (SERTRALINE HYDROCHLORIDE) [Concomitant]
  3. TOPROL XL (METOPROLOL SUCCINATE) [Concomitant]
  4. AMITRIPTYLINE (AMITRIPTYLINE) [Concomitant]
  5. PHILLIPS (DOCUSATE SODIUM, PHENOLPHTHALEIN) [Concomitant]
  6. MULTI-VIT (VITAMINS NOS) [Concomitant]

REACTIONS (3)
  - Muscle spasticity [None]
  - Memory impairment [None]
  - Paraesthesia [None]
